FAERS Safety Report 25283864 (Version 1)
Quarter: 2025Q2

REPORT INFORMATION
  Report Type: Spontaneous
  Country: CN (occurrence: CN)
  Receive Date: 20250508
  Receipt Date: 20250508
  Transmission Date: 20250717
  Serious: Yes (Other)
  Sender: PURDUE
  Company Number: CN-NAPPMUNDI-GBR-2025-0125390

PATIENT
  Age: 63 Year
  Sex: Female
  Weight: 62 kg

DRUGS (1)
  1. OXYCONTIN [Suspect]
     Active Substance: OXYCODONE HYDROCHLORIDE
     Indication: Cancer pain
     Dosage: 50 MILLIGRAM, BID
     Route: 048
     Dates: start: 20250419

REACTIONS (8)
  - Chest discomfort [Unknown]
  - Palpitations [Recovering/Resolving]
  - Dyspnoea [Unknown]
  - Nausea [Unknown]
  - Dizziness [Unknown]
  - Hypersensitivity [Unknown]
  - Panic attack [Unknown]
  - Vomiting [Unknown]

NARRATIVE: CASE EVENT DATE: 20250401
